FAERS Safety Report 25918469 (Version 1)
Quarter: 2025Q4

REPORT INFORMATION
  Report Type: Spontaneous
  Country: CN (occurrence: CN)
  Receive Date: 20251014
  Receipt Date: 20251014
  Transmission Date: 20260117
  Serious: Yes (Other)
  Sender: RANBAXY
  Company Number: CN-SUN PHARMACEUTICAL INDUSTRIES INC-2025R1-531297

PATIENT
  Sex: Female
  Weight: 33 kg

DRUGS (1)
  1. IBANDRONIC ACID [Suspect]
     Active Substance: IBANDRONIC ACID
     Indication: Blood calcium
     Dosage: 2 MILLIGRAM
     Route: 065

REACTIONS (1)
  - Blood calcium abnormal [Recovering/Resolving]
